FAERS Safety Report 12995860 (Version 4)
Quarter: 2022Q1

REPORT INFORMATION
  Report Type: Spontaneous
  Country: JP (occurrence: JP)
  Receive Date: 20161202
  Receipt Date: 20220114
  Transmission Date: 20220423
  Serious: Yes (Hospitalization)
  Sender: FDA-Public Use
  Company Number: JP-PFM-2016-02663

PATIENT

DRUGS (4)
  1. PROPRANOLOL HYDROCHLORIDE [Suspect]
     Active Substance: PROPRANOLOL HYDROCHLORIDE
     Indication: Infantile haemangioma
     Dosage: 1 MG/KG/DAY
     Route: 048
     Dates: start: 20160928
  2. PROPRANOLOL HYDROCHLORIDE [Suspect]
     Active Substance: PROPRANOLOL HYDROCHLORIDE
     Dosage: 3 MG/KG/DAY
     Route: 048
     Dates: end: 20161110
  3. Incremin [Concomitant]
     Indication: Anaemia neonatal
     Dosage: 2 ML, UNK
     Route: 048
     Dates: start: 201608
  4. ALFAROL [Concomitant]
     Active Substance: ALFACALCIDOL
     Indication: Rickets
     Dosage: 0.2 ML, UNK
     Route: 048
     Dates: start: 201608

REACTIONS (4)
  - Hepatic function abnormal [Recovered/Resolved]
  - Vomiting [Recovered/Resolved]
  - Glassy eyes [Recovered/Resolved]
  - Sleep disorder [Recovered/Resolved]

NARRATIVE: CASE EVENT DATE: 20160901
